FAERS Safety Report 5863396-X (Version None)
Quarter: 2008Q3

REPORT INFORMATION
  Report Type: 
  Country: None (occurrence: None)
  Receive Date: 20080828
  Receipt Date: 20080821
  Transmission Date: 20090109
  Serious: Yes (Other)
  Sender: FDA-Public Use
  Company Number: PHBS2008AU05495

PATIENT
  Age: 53 Year
  Sex: Male

DRUGS (3)
  1. METOPROLOL TARTRATE [Suspect]
     Indication: HYPERTENSION
     Dosage: 50 MG, BID
  2. PAROXETINE HCL [Interacting]
     Indication: DEPRESSION
     Dosage: 20 MG/DAY
  3. BUPROPION HCL [Interacting]
     Indication: SMOKING CESSATION THERAPY
     Dosage: 150 MG, BID

REACTIONS (6)
  - ACUTE CORONARY SYNDROME [None]
  - ANGINA PECTORIS [None]
  - CORONARY ARTERIAL STENT INSERTION [None]
  - DRUG INTERACTION [None]
  - HYPOTENSION [None]
  - SINUS BRADYCARDIA [None]
